FAERS Safety Report 5541867-3 (Version None)
Quarter: 2007Q4

REPORT INFORMATION
  Report Type: 
  Country: None (occurrence: None)
  Receive Date: 20071210
  Receipt Date: 20071128
  Transmission Date: 20080405
  Serious: Yes (Hospitalization)
  Sender: FDA-Public Use
  Company Number: DE-ROCHE-534304

PATIENT
  Age: 21 Month
  Sex: Male
  Weight: 13 kg

DRUGS (2)
  1. TAMIFLU [Suspect]
     Dosage: DOSE REPORTED: 2X30
     Route: 048
     Dates: start: 20070209, end: 20070211
  2. AMBROXOL [Concomitant]
     Indication: INFECTION
     Dosage: DOSE REPORTED: 3 X 2.5 ML
     Route: 048
     Dates: end: 20070214

REACTIONS (1)
  - MYOCLONUS [None]
